FAERS Safety Report 25676112 (Version 1)
Quarter: 2025Q3

REPORT INFORMATION
  Report Type: Spontaneous
  Country: US (occurrence: None)
  Receive Date: 20250812
  Receipt Date: 20250812
  Transmission Date: 20251021
  Serious: No
  Sender: FDA-CTU
  Company Number: None

PATIENT
  Age: 47 Year
  Sex: Female
  Weight: 65.77 kg

DRUGS (2)
  1. ESTRADIOL [Suspect]
     Active Substance: ESTRADIOL
     Dosage: FREQUENCY : TWICE A WEEK;?
     Route: 062
     Dates: start: 20250428, end: 20250811
  2. LYLLANA [Suspect]
     Active Substance: ESTRADIOL

REACTIONS (1)
  - Application site irritation [None]

NARRATIVE: CASE EVENT DATE: 20250811
